FAERS Safety Report 8181111-4 (Version None)
Quarter: 2012Q1

REPORT INFORMATION
  Report Type: 
  Country: None (occurrence: None)
  Receive Date: 20120302
  Receipt Date: 20120222
  Transmission Date: 20120608
  Serious: Yes (Hospitalization)
  Sender: FDA-Public Use
  Company Number: JP-EISAI INC-E7389-01915-CLI-JP

PATIENT
  Sex: Female
  Weight: 40 kg

DRUGS (29)
  1. ZOMETA [Concomitant]
     Indication: METASTASES TO BONE
     Dosage: UNKNOWN
     Route: 041
  2. LOXOMARIN [Concomitant]
     Dosage: UNKNOWN
     Route: 048
  3. HALAVEN [Suspect]
     Indication: METASTASES TO LIVER
  4. NEOPHAGEN [Concomitant]
     Indication: PROPHYLAXIS
     Dosage: UNKNOWN
     Route: 041
  5. HYSDRON-H [Concomitant]
     Dosage: UNKNOWN
     Route: 048
     Dates: start: 20100603
  6. HYSDRON-H [Concomitant]
     Indication: BREAST CANCER RECURRENT
  7. AZUNOL [Concomitant]
     Indication: PROPHYLAXIS
     Dosage: UNKNOWN
     Route: 065
  8. MAGNESIUM SULFATE [Concomitant]
     Indication: CONSTIPATION
     Dosage: UNKNOWN
     Route: 048
  9. HALAVEN [Suspect]
  10. ALVIATIN [Concomitant]
     Indication: PROPHYLAXIS
     Dosage: UNKNOWN
     Route: 048
  11. GLYCEOL [Concomitant]
     Dosage: UNKNOWN
     Route: 065
  12. HALAVEN [Suspect]
     Indication: BREAST CANCER RECURRENT
     Route: 041
     Dates: start: 20110804, end: 20111220
  13. ELIETEN [Concomitant]
     Indication: PROPHYLAXIS
     Dosage: UNKNOWN
     Route: 048
  14. FLOKISYL [Concomitant]
     Indication: PROPHYLAXIS
     Dosage: UNKNOWN
     Route: 048
  15. FUROSEMIDE [Concomitant]
     Dosage: UNKNOWN
     Route: 041
  16. CELESTAMINE TAB [Concomitant]
     Indication: PROPHYLAXIS
     Dosage: UNKNOWN
     Route: 048
  17. HYSDRON-H [Concomitant]
  18. SUPELZON [Concomitant]
     Indication: PROPHYLAXIS
     Dosage: UNKNOWN
     Route: 041
  19. HALAVEN [Suspect]
     Indication: METASTASES TO LUNG
  20. HALAVEN [Suspect]
     Indication: METASTASES TO BONE
  21. PACIF [Concomitant]
     Dosage: UNKNOWN
     Route: 048
  22. LANSOPRAZOLE [Concomitant]
     Indication: PROPHYLAXIS
     Dosage: UNKNOWN
     Route: 048
  23. PRECOAT [Concomitant]
     Dosage: UNKNOWN
     Route: 048
  24. CODEINE PHOSPHATE HYDRATE [Concomitant]
     Dosage: UNKNOWN
     Route: 048
  25. INKALBON [Concomitant]
     Indication: CONSTIPATION
     Dosage: UNKNOWN
  26. DECADRON [Concomitant]
     Indication: PROPHYLAXIS
     Dosage: UNKNOWN
     Route: 041
  27. FAMOTIDINE [Concomitant]
     Indication: PROPHYLAXIS
     Dosage: UNKNOWN
     Route: 041
  28. GRANISETRON [Concomitant]
     Indication: PROPHYLAXIS
     Dosage: UNKNOWN
     Route: 041
  29. TPN ELECTROLYTES IN PLASTIC CONTAINER [Concomitant]
     Indication: MALNUTRITION

REACTIONS (4)
  - LYMPHOPENIA [None]
  - LEUKOPENIA [None]
  - NEUTROPENIA [None]
  - LUNG INFECTION [None]
